FAERS Safety Report 5105224-6 (Version None)
Quarter: 2006Q3

REPORT INFORMATION
  Report Type: 
  Country: None (occurrence: None)
  Receive Date: 20060911
  Receipt Date: 20060830
  Transmission Date: 20061208
  Serious: Yes (Other)
  Sender: FDA-Public Use
  Company Number: 14731

PATIENT
  Age: 12 Month
  Sex: Male

DRUGS (1)
  1. CARBOPLATIN [Suspect]
     Indication: RETINOBLASTOMA

REACTIONS (3)
  - GLIOSIS [None]
  - NECROSIS ISCHAEMIC [None]
  - OPTIC ATROPHY [None]
